FAERS Safety Report 6920244-4 (Version None)
Quarter: 2010Q3

REPORT INFORMATION
  Report Type: 
  Country: None (occurrence: None)
  Receive Date: 20100811
  Receipt Date: 20100803
  Transmission Date: 20110219
  Serious: Yes (Other)
  Sender: FDA-Public Use
  Company Number: AU-AMGEN-KDC428893

PATIENT

DRUGS (4)
  1. PANITUMUMAB [Suspect]
     Indication: GASTROOESOPHAGEAL CANCER
  2. DOCETAXEL [Suspect]
  3. CISPLATIN [Suspect]
  4. FLUOROPYRIMIDINE [Suspect]

REACTIONS (2)
  - DIARRHOEA [None]
  - MOUTH ULCERATION [None]
